FAERS Safety Report 6371536-1 (Version None)
Quarter: 2009Q3

REPORT INFORMATION
  Report Type: 
  Country: None (occurrence: None)
  Receive Date: 20090923
  Receipt Date: 20080325
  Transmission Date: 20100115
  Serious: No
  Sender: FDA-Public Use
  Company Number: US-ASTRAZENECA-2007UW23761

PATIENT
  Age: 419 Month
  Sex: Female
  Weight: 85.3 kg

DRUGS (10)
  1. SEROQUEL [Suspect]
     Indication: SCHIZOPHRENIA
     Route: 048
     Dates: start: 20030101, end: 20050101
  2. SEROQUEL [Suspect]
     Route: 048
     Dates: start: 20060101
  3. ABILIFY [Concomitant]
     Route: 048
     Dates: start: 20060221
  4. ABILIFY [Concomitant]
     Dates: start: 20060101, end: 20080101
  5. GEODON [Concomitant]
     Indication: HALLUCINATION
     Dosage: 40 TO 80 MG
     Route: 048
     Dates: start: 20060221, end: 20061012
  6. GEODON [Concomitant]
     Dates: start: 20060101, end: 20080101
  7. THORAZINE [Concomitant]
     Dates: start: 19820101, end: 19920101
  8. LITHIUM [Concomitant]
     Dates: start: 19820101, end: 19920101
  9. LITHIUM [Concomitant]
     Dates: start: 20060101, end: 20080101
  10. TRAZODONE [Concomitant]
     Indication: SLEEP DISORDER
     Dosage: 50 TO 100 MG FLUCTUATING
     Route: 048
     Dates: start: 20060221

REACTIONS (3)
  - ABNORMAL DREAMS [None]
  - DIABETES MELLITUS [None]
  - OBESITY [None]
